FAERS Safety Report 4774303-5 (Version None)
Quarter: 2005Q3

REPORT INFORMATION
  Report Type: 
  Country: None (occurrence: None)
  Receive Date: 20050921
  Receipt Date: 20050713
  Transmission Date: 20060218
  Serious: Yes (Hospitalization, Other)
  Sender: FDA-Public Use
  Company Number: PHHO2005RU11081

PATIENT
  Age: 26 Year
  Sex: Male
  Weight: 84 kg

DRUGS (5)
  1. GLEEVEC [Suspect]
     Indication: CHRONIC MYELOID LEUKAEMIA
     Dosage: 400 MG, QD
     Route: 048
     Dates: start: 20040702, end: 20041103
  2. GLEEVEC [Suspect]
     Dosage: 300 MG, QD
     Route: 048
     Dates: start: 20050118, end: 20050126
  3. GLEEVEC [Suspect]
     Dosage: 300 MG, QD
     Route: 048
     Dates: start: 20050317, end: 20050322
  4. PARACETAMOL [Concomitant]
     Indication: PYREXIA
     Dates: start: 20050201
  5. ANALGIN [Concomitant]
     Indication: PYREXIA
     Dates: start: 20050201

REACTIONS (3)
  - BLOOD BILIRUBIN INCREASED [None]
  - HEPATITIS TOXIC [None]
  - TRANSAMINASES INCREASED [None]
